FAERS Safety Report 18799673 (Version 1)
Quarter: 2021Q1

REPORT INFORMATION
  Report Type: Spontaneous
  Country: IN (occurrence: IN)
  Receive Date: 20210128
  Receipt Date: 20210128
  Transmission Date: 20210419
  Serious: Yes (Death)
  Sender: FDA-Public Use
  Company Number: IN-PFIZER INC-2020461316

PATIENT
  Age: 77 Year
  Sex: Female

DRUGS (1)
  1. PALBACE [Suspect]
     Active Substance: PALBOCICLIB
     Indication: BREAST CANCER METASTATIC
     Dosage: 100 MG, CYCLIC (3 WEEK ON/ 1 WEEK OFF X 1 MONTH)
     Route: 048
     Dates: start: 20201120, end: 20201128

REACTIONS (1)
  - Death [Fatal]

NARRATIVE: CASE EVENT DATE: 20201128
